FAERS Safety Report 9286211 (Version 1)
Quarter: 2013Q2

REPORT INFORMATION
  Report Type: Spontaneous
  Country: US (occurrence: US)
  Receive Date: 20130513
  Receipt Date: 20130513
  Transmission Date: 20140414
  Serious: Yes (Death)
  Sender: FDA-Public Use
  Company Number: US-GLAXOSMITHKLINE-A1022974A

PATIENT
  Age: 81 Year
  Sex: Female

DRUGS (2)
  1. ADVAIR [Suspect]
     Indication: PRODUCT USED FOR UNKNOWN INDICATION
     Route: 065
  2. SPIRIVA [Suspect]
     Indication: PRODUCT USED FOR UNKNOWN INDICATION
     Route: 065

REACTIONS (2)
  - Death [Fatal]
  - Emphysema [Fatal]
